FAERS Safety Report 4386107-6 (Version None)
Quarter: 2004Q2

REPORT INFORMATION
  Report Type: 
  Country: None (occurrence: None)
  Receive Date: 20040622
  Receipt Date: 20040608
  Transmission Date: 20050107
  Serious: Yes (Hospitalization)
  Sender: FDA-Public Use
  Company Number: 196732

PATIENT
  Age: 39 Year
  Sex: Male

DRUGS (3)
  1. AVONEX [Suspect]
     Indication: MULTIPLE SCLEROSIS
     Dosage: 30 MCG QW IM
     Dates: start: 20030329, end: 20040426
  2. PANTOLOC [Concomitant]
  3. DICETEL [Concomitant]

REACTIONS (3)
  - GASTROINTESTINAL INFECTION [None]
  - INTESTINAL PERFORATION [None]
  - PNEUMONIA [None]
